FAERS Safety Report 25011715 (Version 4)
Quarter: 2025Q2

REPORT INFORMATION
  Report Type: Report from Study
  Country: US (occurrence: US)
  Receive Date: 20250226
  Receipt Date: 20250430
  Transmission Date: 20250716
  Serious: Yes (Other)
  Sender: ACADIA PHARMACEUTICALS
  Company Number: US-ACADIA PHARMACEUTICALS INC.-ACA-2025-TRF-001502

PATIENT

DRUGS (2)
  1. DAYBUE [Suspect]
     Active Substance: TROFINETIDE
     Indication: Rett syndrome
     Dosage: 50 MILLILITER, BID
     Route: 048
     Dates: start: 202412, end: 20250204
  2. DAYBUE [Suspect]
     Active Substance: TROFINETIDE
     Route: 065

REACTIONS (6)
  - Seizure [Unknown]
  - Illness [Recovered/Resolved]
  - Insomnia [Not Recovered/Not Resolved]
  - Product size issue [Recovered/Resolved]
  - Product use complaint [Recovered/Resolved]
  - Underdose [Unknown]

NARRATIVE: CASE EVENT DATE: 20250101
